FAERS Safety Report 17889584 (Version 2)
Quarter: 2020Q2

REPORT INFORMATION
  Report Type: Spontaneous
  Country: DE (occurrence: DE)
  Receive Date: 20200612
  Receipt Date: 20200618
  Transmission Date: 20200714
  Serious: Yes (Hospitalization, Other)
  Sender: FDA-Public Use
  Company Number: DE-SA-2020SA148605

PATIENT

DRUGS (8)
  1. COAPROVEL [Suspect]
     Active Substance: HYDROCHLOROTHIAZIDE\IRBESARTAN
     Indication: PRODUCT USED FOR UNKNOWN INDICATION
     Dosage: 12.530 UNK
     Route: 048
  2. GINKGO BILOBA [Interacting]
     Active Substance: GINKGO
     Indication: PRODUCT USED FOR UNKNOWN INDICATION
     Dosage: 120 MG, QD
     Route: 048
  3. GINKGO BILOBA [Interacting]
     Active Substance: GINKGO
     Dosage: UNK
     Route: 065
  4. TAMSULOSIN HYDROCHLORIDE. [Interacting]
     Active Substance: TAMSULOSIN HYDROCHLORIDE
     Indication: PRODUCT USED FOR UNKNOWN INDICATION
     Dosage: 0.4 MG, QD
     Route: 048
  5. ALLOPURINOL. [Concomitant]
     Active Substance: ALLOPURINOL
     Dosage: 300 MG, 0.5-0-0-0, TABLET
     Route: 048
  6. TARDYFERON [Concomitant]
     Active Substance: FERROUS SULFATE
     Dosage: 80 MG, 2-0-2-0, RETARD-TABLETS
     Route: 048
  7. SIMVA ARISTO [Concomitant]
     Active Substance: SIMVASTATIN
     Dosage: UNK UNK, QD
     Route: 048
  8. TROSPIUM [Concomitant]
     Active Substance: TROSPIUM
     Dosage: UNK UNK, QD
     Route: 048

REACTIONS (9)
  - Drug interaction [Unknown]
  - Orthostatic intolerance [Unknown]
  - Syncope [Unknown]
  - Product prescribing error [Unknown]
  - Dizziness [Unknown]
  - Dehydration [Unknown]
  - Tachycardia [Unknown]
  - Hypotension [Unknown]
  - Product monitoring error [Unknown]
